FAERS Safety Report 8919527 (Version 2)
Quarter: 2013Q4

REPORT INFORMATION
  Report Type: Spontaneous
  Country: US (occurrence: US)
  Receive Date: 20121121
  Receipt Date: 20131121
  Transmission Date: 20140711
  Serious: Yes (Other)
  Sender: FDA-Public Use
  Company Number: US-BAYER-2012-120717

PATIENT
  Age: 25 Year
  Sex: Female

DRUGS (11)
  1. YASMIN [Suspect]
     Dosage: UNK
     Dates: start: 2008, end: 2009
  2. YAZ [Suspect]
     Dosage: UNK
     Dates: start: 2008, end: 2009
  3. OCELLA [Suspect]
     Dosage: UNK
     Dates: start: 2008, end: 2009
  4. IBUPROFEN [Concomitant]
     Dosage: DAILY DOSE 800 MG
     Dates: start: 20090810, end: 20090911
  5. ACETAMINOPHEN W/CODEINE [Concomitant]
     Dosage: UNK
     Dates: start: 20090810, end: 20090911
  6. AZITHROMYCIN [Concomitant]
     Dosage: DAILY DOSE 200 MG
     Dates: start: 20090928
  7. FUROSEMIDE [Concomitant]
     Dosage: UNK
     Dates: start: 20090810, end: 20091212
  8. LEVOTHYROXINE [Concomitant]
     Dosage: DAILY DOSE 50 MCG/24HR
     Dates: start: 20090416, end: 20091014
  9. NYSTATIN [Concomitant]
     Dosage: UNK
     Dates: start: 20091016
  10. CEPHALEXIN [Concomitant]
     Dosage: UNK
     Dates: start: 20091016
  11. HYDROCODONE W/ACETAMINOPHEN [Concomitant]
     Dosage: UNK
     Dates: start: 20090112, end: 20091023

REACTIONS (8)
  - Cholecystitis chronic [None]
  - Gallbladder disorder [None]
  - Injury [None]
  - Pain [None]
  - Emotional distress [None]
  - General physical health deterioration [None]
  - Anxiety [None]
  - Pain [None]
